FAERS Safety Report 13556987 (Version 2)
Quarter: 2017Q3

REPORT INFORMATION
  Report Type: Report from Study
  Country: US (occurrence: US)
  Receive Date: 20170518
  Receipt Date: 20170802
  Transmission Date: 20171127
  Serious: No
  Sender: FDA-Public Use
  Company Number: US-TAKEDA-2017MPI004226

PATIENT
  Sex: Female
  Weight: 89 kg

DRUGS (2)
  1. REVLIMID [Suspect]
     Active Substance: LENALIDOMIDE
     Indication: PRODUCT USED FOR UNKNOWN INDICATION
     Dosage: 25 MG, UNK
     Route: 048
  2. IXAZOMIB [Suspect]
     Active Substance: IXAZOMIB
     Indication: PLASMA CELL MYELOMA
     Dosage: 4 MG, UNK
     Route: 048
     Dates: start: 20170430

REACTIONS (7)
  - Insomnia [Unknown]
  - Diarrhoea [Unknown]
  - Headache [Unknown]
  - Hot flush [Unknown]
  - Rhinorrhoea [Unknown]
  - Cough [Unknown]
  - Hyperhidrosis [Unknown]
